FAERS Safety Report 5873856-3 (Version None)
Quarter: 2008Q3

REPORT INFORMATION
  Report Type: 
  Country: None (occurrence: None)
  Receive Date: 20080903
  Receipt Date: 20080903
  Transmission Date: 20090109
  Serious: Yes (Other)
  Sender: FDA-Public Use
  Company Number: None

PATIENT
  Age: 9 Year
  Sex: Male
  Weight: 67.1324 kg

DRUGS (2)
  1. SULFAMETHOXAZOLE AND TRIMETHOPRIM [Suspect]
     Indication: HANGNAIL
     Dosage: 1 TABLET TWICE A DAY PO
     Route: 048
     Dates: start: 20080823, end: 20080902
  2. SULFAMETHOXAZOLE AND TRIMETHOPRIM [Suspect]
     Indication: NAIL INFECTION
     Dosage: 1 TABLET TWICE A DAY PO
     Route: 048
     Dates: start: 20080823, end: 20080902

REACTIONS (3)
  - PAIN [None]
  - PRURITUS [None]
  - URTICARIA [None]
